FAERS Safety Report 8924709 (Version 1)
Quarter: 2012Q4

REPORT INFORMATION
  Report Type: Spontaneous
  Country: US (occurrence: None)
  Receive Date: 20121116
  Receipt Date: 20121116
  Transmission Date: 20130627
  Serious: Yes (Hospitalization)
  Sender: FDA-Public Use
  Company Number: DSU-2012-08963

PATIENT
  Age: 63 Year
  Sex: Female

DRUGS (1)
  1. WELCHOL [Suspect]
     Indication: HYPERCHOLESTEROLEMIA
     Dosage: 3.75 gm (3.75 gm, QD),  Per oral
     Route: 048
     Dates: start: 2012, end: 2012

REACTIONS (2)
  - Dyspnoea [None]
  - Anaphylactic shock [None]
